FAERS Safety Report 16545816 (Version 1)
Quarter: 2019Q3

REPORT INFORMATION
  Report Type: Spontaneous
  Country: SG (occurrence: SG)
  Receive Date: 20190709
  Receipt Date: 20190709
  Transmission Date: 20191004
  Serious: Yes (Other)
  Sender: FDA-Public Use
  Company Number: SG-ASTRAZENECA-2019SE96382

PATIENT

DRUGS (1)
  1. IMFINZI [Suspect]
     Active Substance: DURVALUMAB
     Dosage: 480MG/CYCLE
     Route: 042
     Dates: start: 20190503, end: 20190615

REACTIONS (3)
  - Cough [Unknown]
  - Radiation pneumonitis [Unknown]
  - Dyspnoea [Unknown]
